FAERS Safety Report 14402732 (Version 3)
Quarter: 2018Q4

REPORT INFORMATION
  Report Type: Spontaneous
  Country: BR (occurrence: BR)
  Receive Date: 20180117
  Receipt Date: 20181110
  Transmission Date: 20190204
  Serious: No
  Sender: FDA-Public Use
  Company Number: BR-CELLTRION INC.-2018BR017253

PATIENT

DRUGS (1)
  1. REMSIMA [Suspect]
     Active Substance: INFLIXIMAB
     Indication: COLITIS
     Dosage: UNK,  AMPOULE BOTTLE 100 MG, 4 AMPULES EVERY 6 WEEKS
     Route: 042
     Dates: start: 2017, end: 2017

REACTIONS (1)
  - Therapeutic response unexpected [Unknown]
